FAERS Safety Report 5128098-6 (Version None)
Quarter: 2006Q4

REPORT INFORMATION
  Report Type: 
  Country: None (occurrence: None)
  Receive Date: 20061003
  Receipt Date: 20060918
  Transmission Date: 20070319
  Serious: Yes (Hospitalization)
  Sender: FDA-Public Use
  Company Number: 200610279BBE

PATIENT
  Sex: Male

DRUGS (1)
  1. GAMIMUNE N 5% [Suspect]

REACTIONS (1)
  - PHRENIC NERVE PARALYSIS [None]
